FAERS Safety Report 10715868 (Version 1)
Quarter: 2015Q1

REPORT INFORMATION
  Report Type: Spontaneous
  Country: US (occurrence: None)
  Receive Date: 20150108
  Receipt Date: 20150108
  Transmission Date: 20150721
  Serious: Yes (Hospitalization)
  Sender: FDA-Public Use
  Company Number: 396576

PATIENT
  Age: 40 Year
  Sex: Female
  Weight: 77.6 kg

DRUGS (5)
  1. INSULIN, REGULAR [Concomitant]
     Active Substance: INSULIN NOS
  2. LEVEMIR [Suspect]
     Active Substance: INSULIN DETEMIR
     Indication: TYPE 2 DIABETES MELLITUS
     Dosage: 50 U, QD AT BEDTIME, SUBCUTANEOUS
     Route: 058
     Dates: start: 20131129, end: 20131202
  3. NOVOLOG [Concomitant]
     Active Substance: INSULIN ASPART
  4. HYDROCODONE [Concomitant]
     Active Substance: HYDROCODONE
  5. XANAX [Concomitant]
     Active Substance: ALPRAZOLAM

REACTIONS (2)
  - Diabetic ketoacidosis [None]
  - Gastroenteritis bacterial [None]

NARRATIVE: CASE EVENT DATE: 20131203
